FAERS Safety Report 4802789-6 (Version None)
Quarter: 2005Q4

REPORT INFORMATION
  Report Type: 
  Country: None (occurrence: None)
  Receive Date: 20051013
  Receipt Date: 20050927
  Transmission Date: 20060501
  Serious: Yes (Hospitalization)
  Sender: FDA-Public Use
  Company Number: 200509IM000478

PATIENT
  Age: 59 Year
  Sex: Female

DRUGS (3)
  1. ADVAFERON (A643_INTERFERON ALFACON_1) [Suspect]
     Indication: HEPATITIS C
     Dosage: 18 MIU, QD, INTRAMUSCULAR
     Route: 030
     Dates: start: 20030217, end: 20030301
  2. URSODEOXYCHOLIC ACID [Concomitant]
  3. ADALAT [Concomitant]

REACTIONS (7)
  - ABDOMINAL PAIN UPPER [None]
  - ANOREXIA [None]
  - AUTOIMMUNE HEPATITIS [None]
  - GASTRITIS [None]
  - THYROID FUNCTION TEST ABNORMAL [None]
  - THYROIDITIS CHRONIC [None]
  - VIRAEMIA [None]
